FAERS Safety Report 8874922 (Version 1)
Quarter: 2012Q4

REPORT INFORMATION
  Report Type: 
  Country: US (occurrence: US)
  Receive Date: 20121026
  Receipt Date: 20121026
  Transmission Date: 20130627
  Serious: No
  Sender: FDA-Public Use
  Company Number: US-AMGEN-USASP2012042503

PATIENT
  Age: 56 Year
  Sex: Female
  Weight: 90.7 kg

DRUGS (13)
  1. ENBREL [Suspect]
     Indication: PRODUCT USED FOR UNKNOWN INDICATION
     Dosage: 50 mg, qwk
  2. NAPROXEN [Concomitant]
     Dosage: 500 mg, UNK
  3. METFORMIN [Concomitant]
     Dosage: 500 mg, UNK
  4. SIMVASTATIN [Concomitant]
     Dosage: 80 mg, UNK
  5. FAMOTIDINE [Concomitant]
     Dosage: 10 mg, UNK
  6. LEVOTHYROXIN [Concomitant]
     Dosage: UNK (112CG)
  7. PREDNISOLONE [Concomitant]
     Dosage: 5 mg, UNK
  8. LOSARTAN POTASSIUM [Concomitant]
     Dosage: 50 mg, UNK
  9. VITAMIN D3 [Concomitant]
     Dosage: UNK  (500OUNIT)
  10. FISH OIL [Concomitant]
     Dosage: UNK
  11. VITAMIN B C COMPLEX [Concomitant]
     Dosage: UNK
  12. METHOTREXATE [Concomitant]
     Dosage: 25 mg/ml, UNK
  13. IRON COMPLEX                       /00023501/ [Concomitant]
     Dosage: UNK

REACTIONS (3)
  - Back pain [Unknown]
  - Arthritis [Unknown]
  - Ear infection [Unknown]
